FAERS Safety Report 22093323 (Version 3)
Quarter: 2024Q1

REPORT INFORMATION
  Report Type: Report from Study
  Country: US (occurrence: US)
  Receive Date: 20230314
  Receipt Date: 20240131
  Transmission Date: 20240410
  Serious: Yes (Other)
  Sender: FDA-Public Use
  Company Number: US-JAZZ PHARMACEUTICALS-2023-US-005755

PATIENT
  Sex: Male

DRUGS (13)
  1. XYREM [Suspect]
     Active Substance: SODIUM OXYBATE
     Indication: Narcolepsy
  2. XYREM [Suspect]
     Active Substance: SODIUM OXYBATE
     Indication: Cataplexy
  3. XYREM [Suspect]
     Active Substance: SODIUM OXYBATE
     Indication: Somnolence
  4. LYRICA [Suspect]
     Active Substance: PREGABALIN
     Indication: Product used for unknown indication
  5. CRESTOR [Concomitant]
     Active Substance: ROSUVASTATIN CALCIUM
     Dosage: 0000
     Dates: start: 20140219
  6. CITALOPRAM [Concomitant]
     Active Substance: CITALOPRAM HYDROBROMIDE
     Dosage: 0010
     Dates: start: 20140219
  7. METFORMIN HYDROCHLORIDE [Concomitant]
     Active Substance: METFORMIN HYDROCHLORIDE
     Dosage: 0010
     Dates: start: 20140219
  8. LEVOTHYROXINE [Concomitant]
     Active Substance: LEVOTHYROXINE\LEVOTHYROXINE SODIUM
     Dosage: 0010
     Dates: start: 20140219
  9. MOBIC [Concomitant]
     Active Substance: MELOXICAM
     Dosage: 0010
     Dates: start: 20140219
  10. DILTIAZEM [Concomitant]
     Active Substance: DILTIAZEM
     Dosage: 0010
     Dates: start: 20140219
  11. LOPID [Concomitant]
     Active Substance: GEMFIBROZIL
     Dosage: 0010
     Dates: start: 20140219
  12. CETIRIZINE HCL [Concomitant]
     Active Substance: CETIRIZINE HYDROCHLORIDE
     Dosage: 0000
     Dates: start: 20140423
  13. NEURIVAS [Concomitant]
     Indication: Product used for unknown indication
     Dosage: UNK
     Dates: start: 20230601

REACTIONS (4)
  - Neuropathy peripheral [Unknown]
  - Brain fog [Unknown]
  - Dermatitis diaper [Unknown]
  - Product administration interrupted [Unknown]
